FAERS Safety Report 14844685 (Version 1)
Quarter: 2018Q2

REPORT INFORMATION
  Report Type: Spontaneous
  Country: AU (occurrence: AU)
  Receive Date: 20180504
  Receipt Date: 20180504
  Transmission Date: 20180711
  Serious: Yes (Hospitalization)
  Sender: FDA-Public Use
  Company Number: AU-009507513-1805AUS001351

PATIENT
  Age: 9 Year
  Sex: Female

DRUGS (2)
  1. NASONEX [Suspect]
     Active Substance: MOMETASONE FUROATE
     Indication: RHINITIS ALLERGIC
     Dosage: UNK
     Route: 045
     Dates: start: 201701, end: 201708
  2. NASONEX [Suspect]
     Active Substance: MOMETASONE FUROATE
     Indication: SLEEP APNOEA SYNDROME
     Dosage: 1 PUFF(S), HS
     Route: 045
     Dates: start: 201601, end: 201701

REACTIONS (8)
  - Adenotonsillectomy [Unknown]
  - Myopia [Not Recovered/Not Resolved]
  - Product use in unapproved indication [Unknown]
  - Intraocular pressure increased [Not Recovered/Not Resolved]
  - Visual impairment [Unknown]
  - Drug administered to patient of inappropriate age [Unknown]
  - Product use issue [Unknown]
  - Cataract [Not Recovered/Not Resolved]

NARRATIVE: CASE EVENT DATE: 201607
